FAERS Safety Report 13266318 (Version 1)
Quarter: 2017Q1

REPORT INFORMATION
  Report Type: Report from Study
  Country: CA (occurrence: CA)
  Receive Date: 20170223
  Receipt Date: 20170223
  Transmission Date: 20170428
  Serious: Yes (Hospitalization, Other)
  Sender: FDA-Public Use
  Company Number: PHHY2015CA142088

PATIENT
  Age: 57 Year
  Sex: Female

DRUGS (2)
  1. SANDOSTATIN LAR DEPOT [Suspect]
     Active Substance: OCTREOTIDE ACETATE
     Indication: CARCINOID TUMOUR
     Dosage: 30 MG, EVERY 4 WEEKS
     Route: 030
     Dates: start: 20151028
  2. SANDOSTATIN [Suspect]
     Active Substance: OCTREOTIDE ACETATE
     Indication: CARCINOID TUMOUR
     Dosage: UNK UNK, TID FOR 14 DAYS
     Route: 058
     Dates: start: 20151016

REACTIONS (7)
  - Blood pressure diastolic increased [Unknown]
  - Vomiting [Recovered/Resolved]
  - Abdominal pain [Unknown]
  - Blood pressure increased [Unknown]
  - Blood pressure systolic increased [Unknown]
  - Hepatic enzyme increased [Unknown]
  - Heart rate decreased [Unknown]

NARRATIVE: CASE EVENT DATE: 20151028
